FAERS Safety Report 6543022-7 (Version None)
Quarter: 2010Q1

REPORT INFORMATION
  Report Type: 
  Country: None (occurrence: None)
  Receive Date: 20100120
  Receipt Date: 20100115
  Transmission Date: 20100710
  Serious: Yes (Hospitalization)
  Sender: FDA-Public Use
  Company Number: DE-WYE-G05348510

PATIENT
  Age: 16 Year
  Sex: Female

DRUGS (2)
  1. TREVILOR RETARD [Suspect]
     Dosage: MAX. 20 CAPSULES (MAX. OVERDOSE AMOUNT 1500 MG)
     Route: 048
     Dates: start: 20100114, end: 20100114
  2. MIRTAZAPINE [Suspect]
     Dosage: MAX. 20 TABLETS (OVERDOSE AMOUNT UNKNOWN)
     Route: 048
     Dates: start: 20100114, end: 20100114

REACTIONS (2)
  - INTENTIONAL OVERDOSE [None]
  - SUICIDE ATTEMPT [None]
